FAERS Safety Report 5277375-7 (Version None)
Quarter: 2007Q1

REPORT INFORMATION
  Report Type: 
  Country: None (occurrence: None)
  Receive Date: 20070327
  Receipt Date: 20070322
  Transmission Date: 20070707
  Serious: Yes (Hospitalization)
  Sender: FDA-Public Use
  Company Number: BR-BRISTOL-MYERS SQUIBB COMPANY-13499405

PATIENT
  Age: 10 Year
  Sex: Male
  Weight: 26 kg

DRUGS (1)
  1. AMPHOTERICIN B [Suspect]
     Indication: CATHETER RELATED INFECTION

REACTIONS (3)
  - HYPOKALAEMIA [None]
  - ILEUS PARALYTIC [None]
  - RHABDOMYOLYSIS [None]
